FAERS Safety Report 15428571 (Version 1)
Quarter: 2018Q3

REPORT INFORMATION
  Report Type: Report from Study
  Country: CZ (occurrence: CZ)
  Receive Date: 20180926
  Receipt Date: 20180926
  Transmission Date: 20181010
  Serious: Yes (Death, Life-Threatening, Hospitalization)
  Sender: FDA-Public Use
  Company Number: CZ-TEVA-2018-CZ-958220

PATIENT
  Age: 70 Year
  Sex: Male
  Weight: 80 kg

DRUGS (11)
  1. CARBOPLATIN. [Suspect]
     Active Substance: CARBOPLATIN
     Indication: NEOPLASM MALIGNANT
     Dosage: 335 MG, SINGLE
     Route: 042
     Dates: start: 20160803, end: 20160803
  2. CETUXIMAB. [Concomitant]
     Active Substance: CETUXIMAB
     Indication: SQUAMOUS CELL CARCINOMA
     Route: 042
     Dates: start: 20160722, end: 20160801
  3. DOCETAXEL. [Suspect]
     Active Substance: DOCETAXEL
     Indication: NEOPLASM MALIGNANT
     Dosage: 150 MG, SINGLE
     Route: 042
     Dates: start: 20160803, end: 20160803
  4. RANITAL 50 MG/2 ML [Concomitant]
     Indication: PREMEDICATION
     Dosage: 50 MG/ML, SINGLE, 50 MG / 2ML
     Route: 042
  5. AGEN 5 [Concomitant]
     Indication: HYPERTENSION
     Dosage: 5 MILLIGRAM DAILY;
     Route: 048
     Dates: start: 201602
  6. BLINDED PALBOCICLIB [Concomitant]
     Indication: SQUAMOUS CELL CARCINOMA
     Dosage: 125 MILLIGRAM DAILY;
     Route: 048
     Dates: start: 20160722, end: 20160801
  7. ALGIFEN NEO [Concomitant]
     Indication: PAIN
     Dosage: 60 GTT DAILY; 60 GTT, 3X/DAY
     Route: 048
     Dates: start: 201509
  8. HYDROCORTISONE SODIUM SUCCINATE [Concomitant]
     Active Substance: HYDROCORTISONE SODIUM SUCCINATE
     Indication: PREMEDICATION
     Dosage: 100 MG, SINGLE
     Route: 042
     Dates: start: 20160722, end: 20160722
  9. DITHIADEN [Concomitant]
     Active Substance: BISULEPIN
     Indication: PREMEDICATION
     Dosage: 0.5 MG/ML, SINGLE, 10 X 2 ML X 0.5 MG/ML
     Route: 042
     Dates: start: 20160722, end: 20160722
  10. MILURIT 100 [Concomitant]
     Indication: ARTHRITIS
     Dosage: 100 MILLIGRAM DAILY;
     Route: 048
     Dates: start: 20160609
  11. BLINDED PALBOCICLIB [Concomitant]
     Indication: SQUAMOUS CELL CARCINOMA
     Dosage: 125 MILLIGRAM DAILY;
     Route: 048
     Dates: start: 20160722, end: 20160801

REACTIONS (1)
  - Sepsis [Fatal]

NARRATIVE: CASE EVENT DATE: 20160810
